FAERS Safety Report 25878045 (Version 1)
Quarter: 2025Q4

REPORT INFORMATION
  Report Type: Spontaneous
  Country: EU (occurrence: EU)
  Receive Date: 20251003
  Receipt Date: 20251003
  Transmission Date: 20260117
  Serious: Yes (Life-Threatening, Hospitalization, Other)
  Sender: Haleon PLC
  Company Number: EU-002147023-PHHY2016DE149875

PATIENT
  Age: 23 Year
  Sex: Male
  Weight: 74 kg

DRUGS (11)
  1. DICLOFENAC [Suspect]
     Active Substance: DICLOFENAC
     Indication: Suicide attempt
     Dosage: 1425 MG, QD
     Route: 050
  2. RIVAROXABAN [Suspect]
     Active Substance: RIVAROXABAN
     Indication: Suicide attempt
     Dosage: 20 MG, QD
     Route: 048
  3. RIVAROXABAN [Suspect]
     Active Substance: RIVAROXABAN
     Indication: Deep vein thrombosis
     Dosage: 1960 MG, QD
     Route: 048
  4. DIPYRONE [Suspect]
     Active Substance: DIPYRONE
     Indication: Product used for unknown indication
     Dosage: 21000 MG, UNK
     Route: 048
  5. RIVAROXABAN [Suspect]
     Active Substance: RIVAROXABAN
     Indication: Deep vein thrombosis
     Dosage: 1960 MG, INGESTION AROUND 7 PM
     Route: 048
  6. RIVAROXABAN [Suspect]
     Active Substance: RIVAROXABAN
     Indication: Suicide attempt
  7. METAMIZOLE [Suspect]
     Active Substance: METAMIZOLE
     Indication: Suicide attempt
     Dosage: 21000 MG, QD (INGESTION AROUND 7 PM)
     Route: 048
  8. METAMIZOLE [Suspect]
     Active Substance: METAMIZOLE
     Dosage: 21000 MG (INGESTION AROUND 7 PM)
     Route: 048
  9. PHENPROCOUMON [Suspect]
     Active Substance: PHENPROCOUMON
     Indication: Suicide attempt
     Dosage: 31.5 MG, QD, INGESTION AROUND 7 PM
     Route: 048
  10. PHENPROCOUMON [Suspect]
     Active Substance: PHENPROCOUMON
     Dosage: UNK
     Route: 048
  11. PHENPROCOUMON [Suspect]
     Active Substance: PHENPROCOUMON
     Dosage: UNK
     Route: 048

REACTIONS (12)
  - Suicide attempt [Recovering/Resolving]
  - Intentional overdose [Recovered/Resolved]
  - Platelet dysfunction [Unknown]
  - Coagulation test abnormal [Recovered/Resolved]
  - Poisoning [Unknown]
  - International normalised ratio increased [Unknown]
  - Coagulopathy [Recovering/Resolving]
  - Anticoagulation drug level above therapeutic [Recovered/Resolved]
  - Haematuria [Recovered/Resolved]
  - Vomiting [Recovered/Resolved]
  - Overdose [Recovered/Resolved]
  - Toxicity to various agents [Recovered/Resolved]
